FAERS Safety Report 6108445-9 (Version None)
Quarter: 2009Q1

REPORT INFORMATION
  Report Type: 
  Country: None (occurrence: None)
  Receive Date: 20090309
  Receipt Date: 20090304
  Transmission Date: 20090719
  Serious: Yes (Death)
  Sender: FDA-Public Use
  Company Number: GB-GILEAD-2009-0020704

PATIENT
  Sex: Male

DRUGS (2)
  1. TRUVADA [Suspect]
     Indication: DRUG USE FOR UNKNOWN INDICATION
  2. KALETRA [Suspect]
     Indication: DRUG USE FOR UNKNOWN INDICATION

REACTIONS (2)
  - INTRAVENTRICULAR HAEMORRHAGE [None]
  - SUBARACHNOID HAEMORRHAGE [None]
